FAERS Safety Report 25494552 (Version 1)
Quarter: 2025Q2

REPORT INFORMATION
  Report Type: Spontaneous
  Country: KR (occurrence: KR)
  Receive Date: 20250630
  Receipt Date: 20250630
  Transmission Date: 20250717
  Serious: Yes (Other)
  Sender: MYLAN
  Company Number: KR-MYLANLABS-2025M1053881

PATIENT
  Sex: Female

DRUGS (12)
  1. CELEBREX [Suspect]
     Active Substance: CELECOXIB
     Indication: Product used for unknown indication
     Dosage: 1 DOSAGE FORM, BID
     Dates: start: 20230712, end: 20230725
  2. CELEBREX [Suspect]
     Active Substance: CELECOXIB
     Dosage: 1 DOSAGE FORM, BID
     Route: 065
     Dates: start: 20230712, end: 20230725
  3. CELEBREX [Suspect]
     Active Substance: CELECOXIB
     Dosage: 1 DOSAGE FORM, BID
     Route: 065
     Dates: start: 20230712, end: 20230725
  4. CELEBREX [Suspect]
     Active Substance: CELECOXIB
     Dosage: 1 DOSAGE FORM, BID
     Dates: start: 20230712, end: 20230725
  5. ESOMEPRAZOLE MAGNESIUM [Suspect]
     Active Substance: ESOMEPRAZOLE MAGNESIUM
     Indication: Product used for unknown indication
     Dosage: 1 DOSAGE FORM, BID
     Dates: start: 20230712, end: 20230725
  6. ESOMEPRAZOLE MAGNESIUM [Suspect]
     Active Substance: ESOMEPRAZOLE MAGNESIUM
     Dosage: 1 DOSAGE FORM, BID
     Route: 065
     Dates: start: 20230712, end: 20230725
  7. ESOMEPRAZOLE MAGNESIUM [Suspect]
     Active Substance: ESOMEPRAZOLE MAGNESIUM
     Dosage: 1 DOSAGE FORM, BID
     Route: 065
     Dates: start: 20230712, end: 20230725
  8. ESOMEPRAZOLE MAGNESIUM [Suspect]
     Active Substance: ESOMEPRAZOLE MAGNESIUM
     Dosage: 1 DOSAGE FORM, BID
     Dates: start: 20230712, end: 20230725
  9. LIMAPROST [Suspect]
     Active Substance: LIMAPROST
     Indication: Product used for unknown indication
     Dosage: 1 DOSAGE FORM, BID
     Dates: start: 20230712, end: 20230725
  10. LIMAPROST [Suspect]
     Active Substance: LIMAPROST
     Dosage: 1 DOSAGE FORM, BID
     Route: 065
     Dates: start: 20230712, end: 20230725
  11. LIMAPROST [Suspect]
     Active Substance: LIMAPROST
     Dosage: 1 DOSAGE FORM, BID
     Route: 065
     Dates: start: 20230712, end: 20230725
  12. LIMAPROST [Suspect]
     Active Substance: LIMAPROST
     Dosage: 1 DOSAGE FORM, BID
     Dates: start: 20230712, end: 20230725

REACTIONS (2)
  - Dermatitis bullous [Unknown]
  - Blister [Unknown]

NARRATIVE: CASE EVENT DATE: 20230712
